FAERS Safety Report 8837006 (Version 1)
Quarter: 2012Q4

REPORT INFORMATION
  Report Type: Report from Study
  Country: JP (occurrence: JP)
  Receive Date: 20121012
  Receipt Date: 20121012
  Transmission Date: 20130627
  Serious: Yes (Hospitalization)
  Sender: FDA-Public Use
  Company Number: JP-PFIZER INC-2012249921

PATIENT
  Age: 74 Year
  Sex: Male

DRUGS (10)
  1. MEDROL [Suspect]
     Indication: RHEUMATOID ARTHRITIS
     Dosage: 4 mg, 1x/day
     Route: 048
     Dates: end: 20090108
  2. MEDROL [Suspect]
     Dosage: 3 mg, 1x/day
     Dates: start: 20090109
  3. ACTEMRA [Suspect]
     Indication: RHEUMATOID ARTHRITIS
     Dosage: 600mg once per 4 weeks
     Route: 041
     Dates: start: 20080826, end: 20100212
  4. ALENDRONATE SODIUM [Concomitant]
     Indication: PROPHYLAXIS
     Dosage: 35 mg, weekly
     Route: 048
  5. COLCHICINE [Concomitant]
     Dosage: 0.5 mg, 1x/day
     Route: 048
  6. NABUMETONE [Concomitant]
     Indication: RHEUMATOID ARTHRITIS
     Dosage: 800 mg, 1x/day
     Route: 048
  7. VESICARE [Concomitant]
     Indication: POLLAKIURIA
     Dosage: 5 mg, 1x/day
  8. AVISHOT [Concomitant]
     Indication: BENIGN PROSTATIC HYPERPLASIA
     Dosage: 25 mg, 1x/day
     Route: 048
  9. LASIX [Concomitant]
     Indication: OEDEMA
     Dosage: 20 mg, 1x/day
     Route: 048
     Dates: start: 20081018
  10. BLOPRESS [Concomitant]
     Indication: HYPERTENSION
     Dosage: 4 mg, 1x/day
     Route: 048
     Dates: start: 20081226

REACTIONS (1)
  - Pneumonia [Recovered/Resolved]
